FAERS Safety Report 7932186-6 (Version None)
Quarter: 2011Q4

REPORT INFORMATION
  Report Type: 
  Country: None (occurrence: None)
  Receive Date: 20111121
  Receipt Date: 20111110
  Transmission Date: 20120403
  Serious: Yes (Hospitalization)
  Sender: FDA-Public Use
  Company Number: US-ASTRAZENECA-2011SE68670

PATIENT
  Age: 87 Year
  Sex: Female
  Weight: 61.2 kg

DRUGS (9)
  1. LOVASTATIN [Concomitant]
  2. FUROSEMIDE [Concomitant]
  3. PAROXITIN [Concomitant]
  4. FASLODEX [Suspect]
     Indication: BREAST CANCER
     Route: 030
     Dates: start: 20100101
  5. LEVOPHYROXINE [Concomitant]
  6. FASLODEX [Suspect]
     Route: 030
     Dates: start: 20110501
  7. PHENYTOIN [Concomitant]
  8. PLAVIX [Concomitant]
  9. LESCOL [Concomitant]

REACTIONS (1)
  - INTESTINAL OBSTRUCTION [None]
